FAERS Safety Report 16923026 (Version 2)
Quarter: 2019Q4

REPORT INFORMATION
  Report Type: Report from Study
  Country: US (occurrence: US)
  Receive Date: 20191016
  Receipt Date: 20191119
  Transmission Date: 20200122
  Serious: No
  Sender: FDA-Public Use
  Company Number: NVSC2019US003745

PATIENT
  Age: 30 Year
  Sex: Female

DRUGS (1)
  1. GLATOPA [Suspect]
     Active Substance: GLATIRAMER ACETATE
     Indication: MULTIPLE SCLEROSIS RELAPSE
     Dosage: 40 MG, TIW
     Route: 058
     Dates: start: 20191001

REACTIONS (3)
  - Vomiting [Unknown]
  - Nausea [Unknown]
  - Injection site mass [Unknown]

NARRATIVE: CASE EVENT DATE: 20191001
